FAERS Safety Report 6129034-6 (Version None)
Quarter: 2009Q1

REPORT INFORMATION
  Report Type: 
  Country: None (occurrence: None)
  Receive Date: 20090324
  Receipt Date: 20090311
  Transmission Date: 20090719
  Serious: Yes (Other)
  Sender: FDA-Public Use
  Company Number: US-ELI_LILLY_AND_COMPANY-US200903002766

PATIENT
  Sex: Female

DRUGS (8)
  1. EVISTA [Suspect]
     Dosage: UNK, UNKNOWN
     Route: 065
  2. LIPITOR [Concomitant]
     Dosage: UNK, UNKNOWN
     Route: 065
  3. ZOCOR [Concomitant]
     Dosage: UNK, UNKNOWN
     Route: 065
  4. IMURAN [Concomitant]
     Dosage: UNK, UNKNOWN
     Route: 065
  5. CALCIUM [Concomitant]
     Dosage: UNK, UNKNOWN
     Route: 065
  6. ACIPHEX [Concomitant]
     Dosage: UNK, UNKNOWN
     Route: 065
  7. ASPIRIN [Concomitant]
     Dosage: 81 MG, DAILY (1/D)
     Route: 065
  8. ASPIRIN [Concomitant]
     Dosage: 81 MG, 3/W
     Route: 065

REACTIONS (2)
  - LIMB DISCOMFORT [None]
  - TRANSIENT ISCHAEMIC ATTACK [None]
